FAERS Safety Report 6815386-8 (Version None)
Quarter: 2010Q3

REPORT INFORMATION
  Report Type: 
  Country: None (occurrence: None)
  Receive Date: 20100701
  Receipt Date: 20100701
  Transmission Date: 20110219
  Serious: Yes (Life-Threatening, Hospitalization)
  Sender: FDA-Public Use
  Company Number: None

PATIENT
  Age: 64 Year
  Sex: Male
  Weight: 70.2 kg

DRUGS (3)
  1. BENDAMUSTINE 5 MG/ML CEPHALON [Suspect]
     Indication: CHRONIC LYMPHOCYTIC LEUKAEMIA
     Dosage: 187 MG IV
     Route: 042
     Dates: start: 20080501, end: 20090601
  2. BENDAMUSTINE 5 MG/ML CEPHALON [Suspect]
     Indication: CHRONIC LYMPHOCYTIC LEUKAEMIA
     Dosage: 187 MG IV
     Route: 042
     Dates: start: 20100505, end: 20100506
  3. GRANISETRON HCL [Concomitant]

REACTIONS (1)
  - AUTOIMMUNE THROMBOCYTOPENIA [None]
